FAERS Safety Report 7879977-8 (Version None)
Quarter: 2011Q4

REPORT INFORMATION
  Report Type: 
  Country: None (occurrence: None)
  Receive Date: 20111101
  Receipt Date: 20111026
  Transmission Date: 20120403
  Serious: Yes (Hospitalization)
  Sender: FDA-Public Use
  Company Number: AU-ROCHE-1007582

PATIENT
  Sex: Female

DRUGS (9)
  1. PERIACTIN [Concomitant]
  2. PREDNISONE [Concomitant]
  3. ACTEMRA [Suspect]
     Indication: RHEUMATOID ARTHRITIS
     Dates: start: 20110830
  4. ACTOS [Concomitant]
  5. MIXTARD HUMAN 70/30 [Concomitant]
  6. CALCITRIOL [Concomitant]
  7. OXYCODONE HCL [Concomitant]
  8. TRAMADOL HYDROCHLORIDE [Concomitant]
  9. ARAVA [Concomitant]

REACTIONS (3)
  - SOMNOLENCE [None]
  - COMA [None]
  - LOSS OF CONSCIOUSNESS [None]
